FAERS Safety Report 18744411 (Version 2)
Quarter: 2021Q1

REPORT INFORMATION
  Report Type: Spontaneous
  Country: US (occurrence: US)
  Receive Date: 20210115
  Receipt Date: 20210331
  Transmission Date: 20210419
  Serious: No
  Sender: FDA-Public Use
  Company Number: US-ALXN-A202100313

PATIENT
  Sex: Female

DRUGS (2)
  1. STRENSIQ [Suspect]
     Active Substance: ASFOTASE ALFA
     Dosage: 1 DF (1 SHOT), SIX TIMES/WEEK
     Route: 065
  2. STRENSIQ [Suspect]
     Active Substance: ASFOTASE ALFA
     Indication: HYPOPHOSPHATASIA
     Dosage: 2 DF (2 SHOTS THREE TIMES A WEEK), TIW
     Route: 065

REACTIONS (4)
  - Headache [Unknown]
  - Injection site erythema [Unknown]
  - Injection site vesicles [Unknown]
  - Nausea [Unknown]
